FAERS Safety Report 4644463-5 (Version None)
Quarter: 2005Q2

REPORT INFORMATION
  Report Type: 
  Country: None (occurrence: None)
  Receive Date: 20050331
  Receipt Date: 20050217
  Transmission Date: 20051028
  Serious: No
  Sender: FDA-Public Use
  Company Number: 05P-163-0291253-00

PATIENT
  Age: 50 Year
  Sex: Female
  Weight: 52.1637 kg

DRUGS (4)
  1. HUMIRA [Suspect]
     Indication: RHEUMATOID ARTHRITIS
     Dosage: 40 MG, 1 IN 2 WK, SUBCUTANEOUS
     Route: 058
     Dates: start: 20040212
  2. ETODOLAC [Concomitant]
  3. VITAMINS [Concomitant]
  4. RISEDRONATE SODIUM [Concomitant]

REACTIONS (3)
  - ACUTE SINUSITIS [None]
  - HEADACHE [None]
  - NASOPHARYNGITIS [None]
